FAERS Safety Report 8524589-6 (Version None)
Quarter: 2012Q3

REPORT INFORMATION
  Report Type: 
  Country: None (occurrence: None)
  Receive Date: 20120720
  Receipt Date: 20120718
  Transmission Date: 20120928
  Serious: Yes (Life-Threatening)
  Sender: FDA-Public Use
  Company Number: PT-B.I. PHARMACEUTICALS,INC./RIDGEFIELD-2012-EU-03662PO

PATIENT
  Sex: Female

DRUGS (9)
  1. PROPRANOLOL HYDROCHORIDE [Concomitant]
     Indication: HYPERTENSION
     Dosage: 40 MG
     Route: 048
  2. CANDESARTAN CILEXETIL [Concomitant]
     Indication: HYPERTENSION
     Dosage: 16 MG
     Route: 048
  3. PRADAXA [Suspect]
     Indication: PROPHYLAXIS
     Route: 048
     Dates: start: 20120301, end: 20120616
  4. ALLOPURINOL [Concomitant]
     Indication: PRODUCT USED FOR UNKNOWN INDICATION
     Dosage: 100 MG
     Route: 048
  5. FUROSEMIDE [Concomitant]
     Indication: HYPERTENSION
     Dosage: 60 MG
     Route: 048
  6. RILMENIDINE [Concomitant]
     Indication: HYPERTENSION
     Dosage: 1 MG
     Route: 048
  7. LERCANIDIPINE HYDROCHORIDE [Concomitant]
     Indication: HYPERTENSION
     Dosage: 10 MG
     Route: 048
  8. WARFARIN SODIUM [Concomitant]
     Indication: PROPHYLAXIS
     Dosage: 5 MG
     Route: 048
     Dates: start: 20090101, end: 20120301
  9. SIMVASTATIN [Concomitant]
     Indication: DYSLIPIDAEMIA
     Dosage: 20 MG
     Route: 048

REACTIONS (7)
  - ANGINA PECTORIS [None]
  - GASTROINTESTINAL HAEMORRHAGE [None]
  - HAEMOGLOBIN DECREASED [None]
  - HAEMATOCHEZIA [None]
  - RENAL IMPAIRMENT [None]
  - ANGIODYSPLASIA [None]
  - ANAEMIA [None]
